FAERS Safety Report 8914486 (Version 1)
Quarter: 2012Q4

REPORT INFORMATION
  Report Type: 
  Country: US (occurrence: US)
  Receive Date: 20121116
  Receipt Date: 20121116
  Transmission Date: 20130627
  Serious: Yes (Other)
  Sender: FDA-Public Use
  Company Number: US-UCBSA-070862

PATIENT
  Age: 43 Year
  Sex: Female
  Weight: 81.6 kg

DRUGS (2)
  1. CIMZIA [Suspect]
     Indication: CROHN^S DISEASE
     Route: 058
     Dates: start: 2008, end: 20121106
  2. ASACOL [Concomitant]
     Indication: CROHN^S DISEASE
     Dosage: 400 MG, TITRATING DOWN FROM 2 A DAY DOWN TO ZERO,800 DOWN TO 400 TO 0
     Route: 048
     Dates: start: 2004, end: 201209

REACTIONS (4)
  - Clostridium difficile infection [Recovered/Resolved]
  - Liver injury [Not Recovered/Not Resolved]
  - Crohn^s disease [Recovered/Resolved]
  - Activated partial thromboplastin time prolonged [Not Recovered/Not Resolved]
